FAERS Safety Report 21649327 (Version 1)
Quarter: 2022Q4

REPORT INFORMATION
  Report Type: Spontaneous
  Country: US (occurrence: US)
  Receive Date: 20221128
  Receipt Date: 20221128
  Transmission Date: 20230113
  Serious: No
  Sender: FDA-Public Use
  Company Number: US-BAYER-2022A163387

PATIENT
  Age: 64 Year
  Sex: Male

DRUGS (7)
  1. MIRALAX [Suspect]
     Active Substance: POLYETHYLENE GLYCOL 3350
     Indication: Gastrointestinal disorder
     Dosage: I TAKE IT WITH 8OZ OF WATER AND A CAPFUL OF THE MIRALAX
     Route: 048
  2. MIRALAX [Suspect]
     Active Substance: POLYETHYLENE GLYCOL 3350
     Indication: Gastrointestinal disorder
     Dosage: I TAKE IT WITH 8OZ OF WATER AND A CAPFUL OF THE MIRALAX
     Route: 048
  3. COGENTIN [Concomitant]
     Active Substance: BENZTROPINE MESYLATE
  4. PIROXICAM [Concomitant]
     Active Substance: PIROXICAM
  5. ABILIFY [Concomitant]
     Active Substance: ARIPIPRAZOLE
  6. LOSARTAN [Concomitant]
     Active Substance: LOSARTAN
  7. LASIX [Concomitant]
     Active Substance: FUROSEMIDE

REACTIONS (1)
  - Drug ineffective [Unknown]
